FAERS Safety Report 4457535-5 (Version None)
Quarter: 2004Q3

REPORT INFORMATION
  Report Type: 
  Country: None (occurrence: None)
  Receive Date: 20040921
  Receipt Date: 20040907
  Transmission Date: 20050211
  Serious: No
  Sender: FDA-Public Use
  Company Number: A0524796A

PATIENT
  Age: 42 Year
  Sex: Female
  Weight: 57.5615 kg

DRUGS (1)
  1. NICODERM CQ [Suspect]
     Indication: SMOKING CESSATION THERAPY
     Dosage: 7 MG PER DAY, TRANSDERMAL
     Route: 062
     Dates: start: 20040401

REACTIONS (5)
  - ABDOMINAL PAIN [None]
  - BURNING SENSATION [None]
  - ENDOMETRIOSIS [None]
  - GASTROINTESTINAL DISORDER [None]
  - OVARIAN CYST [None]
